FAERS Safety Report 22231029 (Version 1)
Quarter: 2023Q2

REPORT INFORMATION
  Report Type: Spontaneous
  Country: US (occurrence: None)
  Receive Date: 20230420
  Receipt Date: 20230420
  Transmission Date: 20230722
  Serious: Yes (Other)
  Sender: FDA-Public Use
  Company Number: US-ROCHE-3222095

PATIENT
  Sex: Female

DRUGS (6)
  1. KADCYLA [Suspect]
     Active Substance: ADO-TRASTUZUMAB EMTANSINE
     Indication: Breast cancer metastatic
     Route: 065
  2. TRASTUZUMAB [Concomitant]
     Active Substance: TRASTUZUMAB
     Route: 065
  3. PERTUZUMAB [Concomitant]
     Active Substance: PERTUZUMAB
  4. LUPRON [Concomitant]
     Active Substance: LEUPROLIDE ACETATE
  5. DOCETAXEL [Concomitant]
     Active Substance: DOCETAXEL
  6. CARBOPLATIN [Concomitant]
     Active Substance: CARBOPLATIN

REACTIONS (5)
  - Hepatic enzyme increased [Unknown]
  - Post procedural haemorrhage [Unknown]
  - Artificial menopause [Unknown]
  - Arthralgia [Unknown]
  - Heart rate decreased [Unknown]
